FAERS Safety Report 19274682 (Version 1)
Quarter: 2021Q2

REPORT INFORMATION
  Report Type: Spontaneous
  Country: US (occurrence: US)
  Receive Date: 20210519
  Receipt Date: 20210519
  Transmission Date: 20210717
  Serious: Yes (Other)
  Sender: FDA-Public Use
  Company Number: US-MYLANLABS-2021M1028758

PATIENT
  Age: 44 Year
  Sex: Female

DRUGS (2)
  1. ERIBULIN [Concomitant]
     Active Substance: ERIBULIN
     Indication: INVASIVE DUCTAL BREAST CARCINOMA
     Route: 065
  2. DEXAMETHASONE. [Suspect]
     Active Substance: DEXAMETHASONE
     Indication: METASTASES TO CENTRAL NERVOUS SYSTEM
     Route: 065

REACTIONS (1)
  - Drug ineffective [Unknown]
